FAERS Safety Report 20144536 (Version 1)
Quarter: 2021Q4

REPORT INFORMATION
  Report Type: Spontaneous
  Country: US (occurrence: None)
  Receive Date: 20211202
  Receipt Date: 20211202
  Transmission Date: 20220303
  Serious: Yes (Hospitalization)
  Sender: FDA-Public Use
  Company Number: None

PATIENT
  Sex: Female

DRUGS (9)
  1. ENBREL [Suspect]
     Active Substance: ETANERCEPT
     Indication: Osteoarthritis
     Dosage: FREQUENCY : WEEKLY;?
     Route: 058
     Dates: start: 20180202
  2. ALBUTEROL [Concomitant]
     Active Substance: ALBUTEROL
  3. AMOX KCLAV [Concomitant]
  4. ASPIRIN [Concomitant]
     Active Substance: ASPIRIN
  5. FOLIC ACID [Concomitant]
     Active Substance: FOLIC ACID
  6. MELOXICAM [Concomitant]
     Active Substance: MELOXICAM
  7. PANTOPRAZOLE [Concomitant]
     Active Substance: PANTOPRAZOLE
  8. SOLIFENACIN [Concomitant]
     Active Substance: SOLIFENACIN
  9. WIXELA INHUB [Concomitant]
     Active Substance: FLUTICASONE PROPIONATE\SALMETEROL XINAFOATE

REACTIONS (1)
  - Hospitalisation [None]
